FAERS Safety Report 11240124 (Version 1)
Quarter: 2015Q3

REPORT INFORMATION
  Report Type: Spontaneous
  Country: US (occurrence: None)
  Receive Date: 20150701
  Receipt Date: 20150701
  Transmission Date: 20151125
  Serious: Yes (Hospitalization)
  Sender: FDA-Public Use
  Company Number: None

PATIENT
  Age: 68 Year
  Sex: Male
  Weight: 92.2 kg

DRUGS (1)
  1. CLOZAPINE (MYLAN) [Suspect]
     Active Substance: CLOZAPINE
     Indication: SCHIZOPHRENIA, PARANOID TYPE
     Route: 048
     Dates: start: 20150503, end: 20150523

REACTIONS (9)
  - Agitation [None]
  - Nausea [None]
  - Small intestinal obstruction [None]
  - Delusion [None]
  - Vomiting [None]
  - Hypotension [None]
  - Paranoia [None]
  - Thinking abnormal [None]
  - Ileus [None]

NARRATIVE: CASE EVENT DATE: 20150505
